FAERS Safety Report 17349784 (Version 1)
Quarter: 2020Q1

REPORT INFORMATION
  Report Type: Spontaneous
  Country: US (occurrence: US)
  Receive Date: 20200130
  Receipt Date: 20200130
  Transmission Date: 20200409
  Serious: No
  Sender: FDA-Public Use
  Company Number: US-AUROBINDO-AUR-APL-2019-021614

PATIENT

DRUGS (1)
  1. DULOXETINE DELAYED-RELEASE CAPSULES USP 20 MG [Suspect]
     Active Substance: DULOXETINE
     Indication: NEURALGIA
     Dosage: 20 MILLIGRAM, ONCE A DAY
     Route: 065
     Dates: start: 20190318, end: 20190321

REACTIONS (3)
  - Nausea [Recovered/Resolved]
  - Drug intolerance [Recovered/Resolved]
  - Dizziness [Recovered/Resolved]

NARRATIVE: CASE EVENT DATE: 20190318
